FAERS Safety Report 23472421 (Version 1)
Quarter: 2024Q1

REPORT INFORMATION
  Report Type: Spontaneous
  Country: None (occurrence: US)
  Receive Date: 20240202
  Receipt Date: 20240202
  Transmission Date: 20240410
  Serious: No
  Sender: FDA-Public Use
  Company Number: US-INSUD PHARMA-2401US00329

PATIENT

DRUGS (2)
  1. OMEPRAZOLE [Suspect]
     Active Substance: OMEPRAZOLE
     Indication: Gastrooesophageal reflux disease
     Dosage: 1 PILL DAILY
     Route: 048
     Dates: start: 202401, end: 202401
  2. OMEPRAZOLE [Suspect]
     Active Substance: OMEPRAZOLE
     Dosage: 2 PILLS DAILY
     Route: 048
     Dates: start: 202401

REACTIONS (4)
  - Drug effect less than expected [Recovering/Resolving]
  - Gastrooesophageal reflux disease [Recovering/Resolving]
  - Product substitution issue [Unknown]
  - Intentional product use issue [Unknown]

NARRATIVE: CASE EVENT DATE: 20240101
